FAERS Safety Report 13844858 (Version 1)
Quarter: 2017Q3

REPORT INFORMATION
  Report Type: Spontaneous
  Country: US (occurrence: US)
  Receive Date: 20170808
  Receipt Date: 20170808
  Transmission Date: 20171127
  Serious: Yes (Other)
  Sender: FDA-Public Use
  Company Number: US-PIRAMAL CRITICAL CARE LIMITED-2017-PEL-003101

PATIENT
  Sex: Female
  Weight: 61 kg

DRUGS (6)
  1. GABLOFEN [Suspect]
     Active Substance: BACLOFEN
     Indication: BRAIN INJURY
     Dosage: 1400 ?G, QD
     Route: 037
  2. GABLOFEN [Suspect]
     Active Substance: BACLOFEN
     Indication: MUSCLE SPASTICITY
     Dosage: 1700 ?G, QD
     Route: 037
  3. VALIUM [Concomitant]
     Active Substance: DIAZEPAM
     Dosage: 2 MG, TID
     Route: 065
  4. OXYBUTYNIN [Concomitant]
     Active Substance: OXYBUTYNIN
     Dosage: 5 G, BID
     Route: 048
  5. CYMBALTA [Concomitant]
     Active Substance: DULOXETINE HYDROCHLORIDE
     Dosage: 120 MG, QD
     Route: 048
  6. LEVOTHYROXINE. [Concomitant]
     Active Substance: LEVOTHYROXINE
     Dosage: 25 ?G, QD
     Route: 065

REACTIONS (5)
  - Femur fracture [Recovering/Resolving]
  - Condition aggravated [None]
  - Device issue [None]
  - Mobility decreased [None]
  - Drug level below therapeutic [None]

NARRATIVE: CASE EVENT DATE: 2016
